FAERS Safety Report 5039464-1 (Version None)
Quarter: 2006Q2

REPORT INFORMATION
  Report Type: 
  Country: None (occurrence: None)
  Receive Date: 20060629
  Receipt Date: 20060601
  Transmission Date: 20061013
  Serious: Yes (Hospitalization)
  Sender: FDA-Public Use
  Company Number: US-AMGEN-US181929

PATIENT
  Sex: Male
  Weight: 109 kg

DRUGS (7)
  1. PROCRIT [Suspect]
     Indication: ANAEMIA
     Route: 065
     Dates: start: 20060425
  2. PEG-INTRON [Suspect]
     Route: 058
     Dates: start: 20060228, end: 20060509
  3. REBETOL [Suspect]
     Route: 048
     Dates: end: 20060509
  4. TERBINAFINE [Concomitant]
     Route: 061
     Dates: start: 20060104
  5. ACETAMINOPHEN [Concomitant]
     Route: 048
     Dates: start: 20060104
  6. VARDENAFIL HYDROCHLORIDE [Concomitant]
     Route: 048
     Dates: start: 20060313
  7. GUAIFENESIN [Concomitant]
     Route: 048
     Dates: start: 20060323

REACTIONS (5)
  - CELLULITIS [None]
  - COUGH [None]
  - INJECTION SITE VESICLES [None]
  - NEUTROPENIA [None]
  - STAPHYLOCOCCAL INFECTION [None]
